FAERS Safety Report 10053123 (Version 1)
Quarter: 2014Q2

REPORT INFORMATION
  Report Type: Spontaneous
  Country: US (occurrence: US)
  Receive Date: 20140402
  Receipt Date: 20140402
  Transmission Date: 20141212
  Serious: No
  Sender: FDA-Public Use
  Company Number: US-TEVA-472860USA

PATIENT
  Age: 39 Year
  Sex: Female
  Weight: 56.3 kg

DRUGS (7)
  1. PARAGARD 380A [Suspect]
     Indication: CONTRACEPTION
     Route: 015
     Dates: start: 20140108
  2. FLORNIF [Concomitant]
     Indication: ADDISON^S DISEASE
  3. HYDROCORTISONE [Concomitant]
     Indication: ADDISON^S DISEASE
  4. BUPROPRIONE [Concomitant]
     Indication: DEPRESSION
  5. ZOFRAN [Concomitant]
     Indication: NAUSEA
  6. ZOFRAN [Concomitant]
     Indication: VOMITING
  7. OXYCODONE [Concomitant]
     Indication: PAIN

REACTIONS (2)
  - Metrorrhagia [Not Recovered/Not Resolved]
  - Pain [Not Recovered/Not Resolved]
